FAERS Safety Report 4389567-X (Version None)
Quarter: 2004Q2

REPORT INFORMATION
  Report Type: 
  Country: None (occurrence: None)
  Receive Date: 20040629
  Receipt Date: 20040323
  Transmission Date: 20050107
  Serious: Yes (Other)
  Sender: FDA-Public Use
  Company Number: US-JNJFOC-20040305318

PATIENT
  Age: 31 Year
  Sex: Male

DRUGS (3)
  1. DURAGESIC [Suspect]
     Indication: PAIN
     Dosage: 50 UG/HR, ORAL
     Route: 048
     Dates: start: 20010101
  2. OXYCONTIN [Concomitant]
  3. VALIUM [Concomitant]

REACTIONS (3)
  - DRUG ABUSER [None]
  - EYE DISORDER [None]
  - EYELID OEDEMA [None]
